FAERS Safety Report 10377897 (Version 1)
Quarter: 2014Q3

REPORT INFORMATION
  Report Type: Other
  Country: GB (occurrence: GB)
  Receive Date: 20140812
  Receipt Date: 20140812
  Transmission Date: 20150326
  Serious: Yes (Hospitalization, Other)
  Sender: FDA-Public Use
  Company Number: GB-SUN PHARMACEUTICAL INDUSTRIES LTD-2014SUN01806

PATIENT

DRUGS (1)
  1. VENLAFAXINE HYDROCHLORIDE 37.5MG TABLET [Suspect]
     Active Substance: VENLAFAXINE HYDROCHLORIDE
     Indication: ANXIETY
     Dosage: 225 MG, UNK
     Route: 065
     Dates: start: 201402, end: 201405

REACTIONS (3)
  - Impulsive behaviour [Recovering/Resolving]
  - Thinking abnormal [Recovering/Resolving]
  - Agitation [Recovering/Resolving]
